FAERS Safety Report 20716365 (Version 1)
Quarter: 2022Q2

REPORT INFORMATION
  Report Type: Spontaneous
  Country: PL (occurrence: PL)
  Receive Date: 20220416
  Receipt Date: 20220416
  Transmission Date: 20220721
  Serious: Yes (Other)
  Sender: FDA-Public Use
  Company Number: PL-002147023-NVSC2022PL072643

PATIENT
  Age: 57 Year
  Sex: Female

DRUGS (4)
  1. LETROZOLE [Suspect]
     Active Substance: LETROZOLE
     Indication: Breast cancer
     Dosage: 2.5 MILLIGRAM, ONCE A DAY
     Route: 065
  2. CALCIUM\VITAMIN D [Suspect]
     Active Substance: CALCIUM\VITAMIN D
     Indication: Product used for unknown indication
     Dosage: 2 DOSAGE FORM, ONCE A DAY
     Route: 065
  3. KISQALI [Suspect]
     Active Substance: RIBOCICLIB
     Indication: Breast cancer
     Dosage: 600 MILLIGRAM ( (3 TABL. OF 200 MG)
     Route: 065
  4. ZOLEDRONIC ACID [Suspect]
     Active Substance: ZOLEDRONIC ACID
     Indication: Breast cancer
     Dosage: UNK (EVERY 3 MONTHS)
     Route: 065

REACTIONS (10)
  - Metastases to bone [Unknown]
  - Leukopenia [Unknown]
  - Neutropenia [Unknown]
  - Arthralgia [Unknown]
  - Diarrhoea [Unknown]
  - Asthenia [Unknown]
  - Respiratory tract infection [Unknown]
  - Somnolence [Unknown]
  - Lacrimation increased [Unknown]
  - Hepatic mass [Unknown]

NARRATIVE: CASE EVENT DATE: 20210809
